FAERS Safety Report 15983337 (Version 1)
Quarter: 2019Q1

REPORT INFORMATION
  Report Type: Spontaneous
  Country: US (occurrence: US)
  Receive Date: 20190220
  Receipt Date: 20190220
  Transmission Date: 20190418
  Serious: Yes (Hospitalization, Other)
  Sender: FDA-Public Use
  Company Number: US-APOTEX-2019AP008129

PATIENT
  Sex: Female

DRUGS (1)
  1. PREDNISOLONE. [Suspect]
     Active Substance: PREDNISOLONE
     Indication: HYPERCALCAEMIA
     Dosage: 1.6 MG/KG, PER DAY
     Route: 065

REACTIONS (3)
  - Failure to thrive [Unknown]
  - Hypertension [Unknown]
  - Hypophagia [Unknown]
